FAERS Safety Report 9853046 (Version 3)
Quarter: 2014Q1

REPORT INFORMATION
  Report Type: Spontaneous
  Country: CA (occurrence: None)
  Receive Date: 20140127
  Receipt Date: 20140211
  Transmission Date: 20141002
  Serious: Yes (Hospitalization)
  Sender: FDA-Public Use
  Company Number: CA-014452

PATIENT
  Age: 81 Year
  Sex: Male

DRUGS (12)
  1. DEGARELIX [Suspect]
     Indication: PROSTATE CANCER
     Dosage: 80 MG 1X/MONTH SUBCUTANEOUS
     Route: 058
     Dates: start: 20130503, end: 20130503
  2. TELMISARTAN [Concomitant]
  3. PRADAXA [Concomitant]
  4. CALCIUM [Concomitant]
  5. AMCAL CALCIUM + VITAMIN D [Concomitant]
  6. METFORMIN [Concomitant]
  7. FLOMAX [Concomitant]
  8. IMOVANE [Concomitant]
  9. AMLODIPINE [Concomitant]
  10. ATORVASTATIN [Concomitant]
  11. ATENOLOL [Concomitant]
  12. BILBERRY + LUTEIN [Concomitant]

REACTIONS (2)
  - Haemoglobin abnormal [None]
  - Haemorrhage [None]
